FAERS Safety Report 9721474 (Version 3)
Quarter: 2014Q1

REPORT INFORMATION
  Report Type: Spontaneous
  Country: JP (occurrence: JP)
  Receive Date: 20131129
  Receipt Date: 20140211
  Transmission Date: 20141002
  Serious: Yes (Other)
  Sender: FDA-Public Use
  Company Number: JP-JNJFOC-20131117742

PATIENT
  Age: 91 Year
  Sex: Female

DRUGS (3)
  1. ZYRTEC [Suspect]
     Route: 048
  2. ZYRTEC [Suspect]
     Indication: PRODUCT USED FOR UNKNOWN INDICATION
     Dosage: DOSE STRENGTH 10 (UNIT UNSPECIFIED)
     Route: 048
  3. ATARAX [Concomitant]
     Indication: PRODUCT USED FOR UNKNOWN INDICATION
     Route: 048

REACTIONS (1)
  - Myoclonus [Unknown]
